FAERS Safety Report 24187792 (Version 1)
Quarter: 2024Q3

REPORT INFORMATION
  Report Type: Report from Study
  Country: US (occurrence: None)
  Receive Date: 20240808
  Receipt Date: 20240808
  Transmission Date: 20241017
  Serious: Yes (Other)
  Sender: ASTRAZENECA
  Company Number: 2022A199539

PATIENT
  Weight: 78 kg

DRUGS (2)
  1. FASENRA [Suspect]
     Active Substance: BENRALIZUMAB
     Indication: Asthma
     Route: 058
     Dates: start: 20210508
  2. FASENRA [Suspect]
     Active Substance: BENRALIZUMAB
     Indication: Bronchitis chronic
     Route: 058
     Dates: start: 20210508

REACTIONS (1)
  - Neoplasm malignant [Unknown]
